FAERS Safety Report 18644062 (Version 2)
Quarter: 2021Q1

REPORT INFORMATION
  Report Type: Spontaneous
  Country: US (occurrence: US)
  Receive Date: 20201221
  Receipt Date: 20210107
  Transmission Date: 20210419
  Serious: Yes (Other)
  Sender: FDA-Public Use
  Company Number: US-SIGMAPHARM LABORATORIES, LLC-2020SIG00118

PATIENT
  Sex: Male
  Weight: 72.58 kg

DRUGS (3)
  1. LIOTHYRONINE SODIUM. [Suspect]
     Active Substance: LIOTHYRONINE SODIUM
     Indication: THYROID HORMONE REPLACEMENT THERAPY
     Dosage: UNK
     Dates: start: 2020, end: 202010
  2. LEVOTHYROXINE. [Concomitant]
     Active Substance: LEVOTHYROXINE
  3. LIOTHYRONINE SODIUM. [Suspect]
     Active Substance: LIOTHYRONINE SODIUM
     Indication: THYROID HORMONE REPLACEMENT THERAPY
     Dosage: 25 MCG, 1X/DAY
     Dates: start: 202010, end: 2020

REACTIONS (12)
  - Tri-iodothyronine free decreased [Not Recovered/Not Resolved]
  - Erection increased [Unknown]
  - Arthralgia [Not Recovered/Not Resolved]
  - Hyperhidrosis [Unknown]
  - Pulmonary pain [Not Recovered/Not Resolved]
  - Hunger [Not Recovered/Not Resolved]
  - Cough [Not Recovered/Not Resolved]
  - Rash [Not Recovered/Not Resolved]
  - C-reactive protein increased [Not Recovered/Not Resolved]
  - Oedema peripheral [Not Recovered/Not Resolved]
  - Red blood cell sedimentation rate increased [Not Recovered/Not Resolved]
  - Weight decreased [Not Recovered/Not Resolved]

NARRATIVE: CASE EVENT DATE: 2020
